FAERS Safety Report 8591461-5 (Version None)
Quarter: 2012Q3

REPORT INFORMATION
  Report Type: 
  Country: None (occurrence: None)
  Receive Date: 20120814
  Receipt Date: 20120806
  Transmission Date: 20120928
  Serious: Yes (Hospitalization)
  Sender: FDA-Public Use
  Company Number: US-JNJFOC-20120712436

PATIENT
  Sex: Female
  Weight: 44 kg

DRUGS (16)
  1. HUMIRA [Suspect]
     Indication: CROHN'S DISEASE
     Dosage: 40 MG PER 0.8 ML
     Route: 058
     Dates: start: 20070101, end: 20120401
  2. MAGNESIUM OXIDE [Concomitant]
     Indication: NEPHROLITHIASIS
     Route: 065
  3. ALL OTHER THERAPEUTICS [Concomitant]
     Route: 065
  4. FOSAMAX [Concomitant]
     Indication: OSTEOPOROSIS
     Route: 065
  5. CALCIUM WITH VITAMIN D [Concomitant]
     Route: 065
  6. ATENOLOL [Concomitant]
     Indication: HEART RATE IRREGULAR
     Route: 065
  7. OMEPRAZOLE [Concomitant]
     Indication: REGURGITATION
     Route: 065
  8. OMEPRAZOLE [Concomitant]
     Indication: PRODUCT USED FOR UNKNOWN INDICATION
     Route: 065
  9. WARFARIN SODIUM [Concomitant]
     Route: 065
  10. SODIUM BICARBONATE [Concomitant]
     Indication: NEPHROLITHIASIS
     Route: 065
  11. FERROUS SULFATE TAB [Concomitant]
     Indication: BLOOD IRON DECREASED
     Route: 065
  12. POTASSIUM CITRATE [Concomitant]
     Indication: NEPHROLITHIASIS
     Route: 065
  13. ERGOCALCIFEROL [Concomitant]
     Indication: VITAMIN D DEFICIENCY
     Route: 065
  14. LEVOTHYROXINE SODIUM [Concomitant]
     Indication: HYPOTHYROIDISM
     Route: 065
  15. REMICADE [Suspect]
     Indication: CROHN'S DISEASE
     Route: 042
     Dates: start: 20120517, end: 20120101
  16. CYANOCOBALAMIN [Concomitant]
     Indication: VITAMIN B12 DEFICIENCY
     Route: 065

REACTIONS (2)
  - MALAISE [None]
  - VIRAL INFECTION [None]
